FAERS Safety Report 11480591 (Version 1)
Quarter: 2015Q3

REPORT INFORMATION
  Report Type: Spontaneous
  Country: FR (occurrence: FR)
  Receive Date: 20150909
  Receipt Date: 20150909
  Transmission Date: 20151125
  Serious: Yes (Hospitalization)
  Sender: FDA-Public Use
  Company Number: FR-JNJFOC-20150824081

PATIENT
  Age: 68 Year
  Sex: Female

DRUGS (28)
  1. XEROQUEL [Suspect]
     Active Substance: QUETIAPINE FUMARATE
     Indication: BIPOLAR I DISORDER
     Dosage: 400 MG
     Route: 048
     Dates: start: 20150121, end: 20150401
  2. LOXAPAC [Concomitant]
     Active Substance: LOXAPINE SUCCINATE
     Indication: BIPOLAR I DISORDER
     Route: 048
     Dates: start: 20150210, end: 20150304
  3. TRANSIPEG [Concomitant]
     Active Substance: POLYETHYLENE GLYCOL 3350
     Indication: CONSTIPATION
     Dosage: 2 AT 4 SACHETS PER DAY
     Route: 048
  4. SERESTA [Concomitant]
     Active Substance: OXAZEPAM
     Route: 048
     Dates: start: 20150121
  5. DUPHALAC [Concomitant]
     Active Substance: LACTULOSE
     Indication: CONSTIPATION
     Dosage: ONE TO 3 SACHETS PER DAY
     Route: 048
  6. MACROGOL [Concomitant]
     Active Substance: POLYETHYLENE GLYCOLS
     Indication: CONSTIPATION
     Route: 048
  7. HALDOL [Suspect]
     Active Substance: HALOPERIDOL
     Indication: BIPOLAR I DISORDER
     Route: 048
     Dates: start: 20150505
  8. CLOPIXOL [Suspect]
     Active Substance: ZUCLOPENTHIXOL ACETATE
     Indication: BIPOLAR I DISORDER
     Dosage: 5 DROPS IN THE MORNING AND 10 DROPS IN THE EVENING
     Route: 048
     Dates: start: 20150330, end: 20150401
  9. XEROQUEL [Suspect]
     Active Substance: QUETIAPINE FUMARATE
     Indication: BIPOLAR I DISORDER
     Route: 048
     Dates: start: 20150404
  10. NOCTAMIDE [Suspect]
     Active Substance: LORMETAZEPAM
     Indication: INSOMNIA
     Route: 048
     Dates: start: 20150316, end: 20150401
  11. PARKINANE [Suspect]
     Active Substance: TRIHEXYPHENIDYL HYDROCHLORIDE
     Indication: BIPOLAR I DISORDER
     Route: 048
     Dates: start: 20150404
  12. TERALITHE [Concomitant]
     Active Substance: LITHIUM CARBONATE
     Route: 048
     Dates: start: 20150316, end: 20150320
  13. TERALITHE [Concomitant]
     Active Substance: LITHIUM CARBONATE
     Route: 048
     Dates: start: 20150320, end: 20150401
  14. NORMACOL [Concomitant]
     Active Substance: KARAYA GUM
     Indication: CONSTIPATION
     Dosage: 1 OR 2 SOLUTIONS
     Route: 048
  15. PREVISCAN (FLUINDIONE) [Concomitant]
     Active Substance: FLUINDIONE
     Dosage: 0.25 TO 1 TABLET PER DAY (DEPENDS IN INR RATE)
     Route: 048
     Dates: start: 20141022
  16. CLOPIXOL [Suspect]
     Active Substance: ZUCLOPENTHIXOL ACETATE
     Indication: BIPOLAR I DISORDER
     Route: 048
     Dates: start: 20150405, end: 20150405
  17. LOXAPAC [Concomitant]
     Active Substance: LOXAPINE SUCCINATE
     Indication: BIPOLAR I DISORDER
     Dosage: 25 DROPS IN THE MORNING AND THE MIDDAY, AND 50 DROPS IN THE EVENING
     Route: 048
     Dates: start: 20150320, end: 20150327
  18. SPAGULAX [Concomitant]
     Active Substance: PLANTAGO OVATA SEED
     Indication: CONSTIPATION
     Route: 065
  19. HALDOL [Suspect]
     Active Substance: HALOPERIDOL
     Indication: BIPOLAR I DISORDER
     Route: 048
     Dates: start: 20150121, end: 20150320
  20. NOCTAMIDE [Suspect]
     Active Substance: LORMETAZEPAM
     Indication: INSOMNIA
     Route: 048
     Dates: start: 20150404
  21. HALDOL [Suspect]
     Active Substance: HALOPERIDOL
     Indication: BIPOLAR I DISORDER
     Route: 048
     Dates: start: 20150320, end: 20150401
  22. HALDOL [Suspect]
     Active Substance: HALOPERIDOL
     Indication: BIPOLAR I DISORDER
     Route: 048
     Dates: start: 20150404, end: 20150505
  23. CLOPIXOL [Suspect]
     Active Substance: ZUCLOPENTHIXOL ACETATE
     Indication: BIPOLAR I DISORDER
     Dosage: 5 DROPS IN THE MORNING AND 10 DROPS IN THE EVENING
     Route: 048
     Dates: start: 20150404
  24. CLOPIXOL [Suspect]
     Active Substance: ZUCLOPENTHIXOL ACETATE
     Indication: BIPOLAR I DISORDER
     Route: 048
     Dates: start: 20150327, end: 20150330
  25. PARKINANE [Suspect]
     Active Substance: TRIHEXYPHENIDYL HYDROCHLORIDE
     Indication: BIPOLAR I DISORDER
     Route: 048
     Dates: start: 20150309, end: 20150401
  26. LOXAPAC [Concomitant]
     Active Substance: LOXAPINE SUCCINATE
     Indication: BIPOLAR I DISORDER
     Dosage: 25 DROPS IN THE MORNING AND THE MIDDAY, AND 50 DROPS IN THE EVENING
     Route: 048
     Dates: start: 20150304, end: 20150320
  27. LOXAPAC [Concomitant]
     Active Substance: LOXAPINE SUCCINATE
     Indication: BIPOLAR I DISORDER
     Route: 048
     Dates: start: 20150206, end: 20150210
  28. TERALITHE [Concomitant]
     Active Substance: LITHIUM CARBONATE
     Route: 048
     Dates: start: 20150404

REACTIONS (2)
  - Intestinal obstruction [Recovered/Resolved]
  - Product use issue [Unknown]

NARRATIVE: CASE EVENT DATE: 20150121
